FAERS Safety Report 7054379-5 (Version None)
Quarter: 2010Q4

REPORT INFORMATION
  Report Type: 
  Country: None (occurrence: None)
  Receive Date: 20101015
  Receipt Date: 20101005
  Transmission Date: 20110411
  Serious: Yes (Hospitalization, Disabling, Other)
  Sender: FDA-Public Use
  Company Number: 2006JP005228

PATIENT
  Age: 39 Year
  Sex: Male
  Weight: 49.5 kg

DRUGS (25)
  1. TACROLIMUS [Suspect]
     Indication: RENAL AND PANCREAS TRANSPLANT
     Dosage: 0.05 MG/KG, BID, ORAL; 3.5 MG, BID, ORAL; 2 MG, ORAL
     Route: 048
     Dates: start: 20060525, end: 20060525
  2. TACROLIMUS [Suspect]
     Indication: RENAL AND PANCREAS TRANSPLANT
     Dosage: 0.05 MG/KG, BID, ORAL; 3.5 MG, BID, ORAL; 2 MG, ORAL
     Route: 048
     Dates: start: 20060526, end: 20080114
  3. TACROLIMUS [Suspect]
     Indication: RENAL AND PANCREAS TRANSPLANT
     Dosage: 0.05 MG/KG, BID, ORAL; 3.5 MG, BID, ORAL; 2 MG, ORAL
     Route: 048
     Dates: start: 20080115
  4. PROGRAF [Suspect]
     Indication: RENAL AND PANCREAS TRANSPLANT
     Dosage: 0.024 MG/KG, CONTINUOUS, IV DRIP
     Route: 041
     Dates: start: 20060526, end: 20060528
  5. CELLCEPT [Suspect]
     Indication: RENAL AND PANCREAS TRANSPLANT
     Dosage: 250 MG, BID, ORAL
     Route: 048
     Dates: start: 20060526, end: 20080115
  6. MEDROL [Suspect]
     Indication: RENAL AND PANCREAS TRANSPLANT
     Dosage: 4 MG,UID/QD, ORAL
     Route: 048
     Dates: start: 20060601
  7. PRODIF (FOSFLUCONAZOLE) FORMULATION UNKNOWN [Suspect]
     Indication: PNEUMONIA CRYPTOCOCCAL
     Dosage: 400 MG
  8. METHYLPREDNISOLONE [Concomitant]
  9. PREDNISOLONE [Concomitant]
  10. SIMULECT [Concomitant]
  11. HUMULIN R [Concomitant]
  12. ALPROSTADIL [Concomitant]
  13. HEPARIN [Concomitant]
  14. FOY (GABEXATE MESILATE) [Concomitant]
  15. CEFAZOLIN [Concomitant]
  16. FUNGUARD (MICAFUNGIN) [Concomitant]
  17. OMEPRAZOLE [Concomitant]
  18. MAALOX (ALUMINUM HYDROXIDE) [Concomitant]
  19. NOVOLOG [Concomitant]
  20. LANTUS [Concomitant]
  21. LUVOX [Concomitant]
  22. DEPAS (ETIZOLAM) [Concomitant]
  23. ADALAT CC [Concomitant]
  24. ASPIRIN [Concomitant]
  25. BONALON (ALENDRONATE SODIUM) [Concomitant]

REACTIONS (5)
  - ARTERIAL THROMBOSIS [None]
  - DRUG INTERACTION [None]
  - HYPERAMYLASAEMIA [None]
  - OROPHARYNGEAL PAIN [None]
  - PNEUMONIA CRYPTOCOCCAL [None]
